FAERS Safety Report 6538790-4 (Version None)
Quarter: 2010Q1

REPORT INFORMATION
  Report Type: 
  Country: None (occurrence: None)
  Receive Date: 20100114
  Receipt Date: 20100114
  Transmission Date: 20100710
  Serious: No
  Sender: FDA-Public Use
  Company Number: None

PATIENT
  Age: 77 Year
  Sex: Male
  Weight: 72.9 kg

DRUGS (26)
  1. GEMTUZUMAB 15MG [Suspect]
     Indication: ACUTE MYELOID LEUKAEMIA
     Dosage: 15MG ONCE IV BOLUS
     Route: 040
     Dates: start: 20090808, end: 20091021
  2. ACYCLOVIR [Concomitant]
  3. ALLOPURINOL [Concomitant]
  4. CEFEPIME [Concomitant]
  5. CITALOPRAM [Concomitant]
  6. DEXAMETHASONE [Concomitant]
  7. DIPHENHYDRAMINE [Concomitant]
  8. DOCUSATE [Concomitant]
  9. FLUCONAZOLE [Concomitant]
  10. FUROSIMIDE [Concomitant]
  11. INSULIN [Concomitant]
  12. METHYLPREDNISOLONE [Concomitant]
  13. METOPROLOL [Concomitant]
  14. METRONIDAZOLE [Concomitant]
  15. MORPHINE [Concomitant]
  16. MULTI-VITAMINS [Concomitant]
  17. NITROGLYCERIN [Concomitant]
  18. OMEPRAZOLE [Concomitant]
  19. ONDANSETRON [Concomitant]
  20. OXYCODONE [Concomitant]
  21. PALONOSETRON [Concomitant]
  22. PROCHOLPERAZINE [Concomitant]
  23. SIMVASTATIN [Concomitant]
  24. VALACYCLOVIR [Concomitant]
  25. VANCOMYCIN [Concomitant]
  26. ZOLPIDEM [Concomitant]

REACTIONS (3)
  - ALANINE AMINOTRANSFERASE INCREASED [None]
  - ASPARTATE AMINOTRANSFERASE INCREASED [None]
  - BLOOD BILIRUBIN INCREASED [None]
